FAERS Safety Report 8799478 (Version 1)
Quarter: 2012Q4

REPORT INFORMATION
  Report Type: Spontaneous
  Country: US (occurrence: None)
  Receive Date: 20120918
  Receipt Date: 20120918
  Transmission Date: 20130627
  Serious: Yes (Other)
  Sender: FDA-Public Use
  Company Number: None

PATIENT
  Age: 54 Year
  Sex: Female
  Weight: 70.31 kg

DRUGS (1)
  1. ACTONEL [Suspect]
     Indication: OSTEOPENIA
     Dosage: 150 mg tablet 1 per month po
     Route: 048
     Dates: start: 20110823, end: 20110823

REACTIONS (3)
  - Myalgia [None]
  - Fatigue [None]
  - Arthralgia [None]
